FAERS Safety Report 23648986 (Version 3)
Quarter: 2024Q4

REPORT INFORMATION
  Report Type: Report from Study
  Country: FR (occurrence: FR)
  Receive Date: 20240319
  Receipt Date: 20241213
  Transmission Date: 20250115
  Serious: Yes (Hospitalization, Other)
  Sender: ALEXION PHARMACEUTICALS
  Company Number: None

PATIENT
  Age: 38 Year

DRUGS (4)
  1. OLAPARIB [Suspect]
     Active Substance: OLAPARIB
     Indication: Invasive ductal breast carcinoma
     Dosage: 600 MILLIGRAM, QD
  2. OLAPARIB [Suspect]
     Active Substance: OLAPARIB
     Dosage: 600 MILLIGRAM, QD
     Route: 048
  3. OLAPARIB [Suspect]
     Active Substance: OLAPARIB
     Dosage: 600 MILLIGRAM, QD
  4. OLAPARIB [Suspect]
     Active Substance: OLAPARIB
     Dosage: 600 MILLIGRAM, QD
     Route: 048

REACTIONS (3)
  - Pancytopenia [Recovered/Resolved]
  - Sepsis [Recovered/Resolved]
  - Febrile bone marrow aplasia [Recovered/Resolved]
